FAERS Safety Report 9414211 (Version 1)
Quarter: 2013Q3

REPORT INFORMATION
  Report Type: Spontaneous
  Country: US (occurrence: US)
  Receive Date: 20130723
  Receipt Date: 20130723
  Transmission Date: 20140515
  Serious: Yes (Hospitalization)
  Sender: FDA-Public Use
  Company Number: US-BRISTOL-MYERS SQUIBB COMPANY-19111301

PATIENT
  Age: 80 Year
  Sex: Female
  Weight: 90.7 kg

DRUGS (17)
  1. BYETTA [Suspect]
     Indication: TYPE 2 DIABETES MELLITUS
  2. GLIMEPIRIDE [Concomitant]
     Route: 048
  3. ACIPHEX [Concomitant]
     Route: 048
  4. ALIGN [Concomitant]
  5. AMLODIPINE BESYLATE [Concomitant]
     Route: 048
  6. DULCOLAX [Concomitant]
  7. FLUOXETINE HCL [Concomitant]
     Route: 048
  8. FUROSEMIDE [Concomitant]
     Route: 048
  9. HYDROCODONE [Concomitant]
     Indication: PAIN
     Dosage: ONE TO TWO TABS EVERY SIX TO EIGHT HOURS AS NEEDED
     Route: 048
  10. CLONOPIN [Concomitant]
     Route: 048
  11. LEVOCETIRIZINE [Concomitant]
     Route: 048
  12. LEVOTHYROXINE [Concomitant]
     Route: 048
  13. LOVAZA [Concomitant]
     Route: 048
  14. METOCLOPRAMIDE HCL [Concomitant]
     Route: 048
  15. PROMETHAZINE [Concomitant]
     Indication: NAUSEA
     Route: 048
  16. SENSIPAR [Concomitant]
     Dosage: 1DF:1TAB
     Route: 048
  17. SIMVASTATIN [Concomitant]
     Route: 048

REACTIONS (1)
  - Injury [Recovered/Resolved]
